FAERS Safety Report 10264184 (Version 1)
Quarter: 2014Q2

REPORT INFORMATION
  Report Type: Spontaneous
  Country: US (occurrence: US)
  Receive Date: 20140627
  Receipt Date: 20140627
  Transmission Date: 20141212
  Serious: Yes (Other)
  Sender: FDA-Public Use
  Company Number: US-ASTRAZENECA-2014SE45565

PATIENT
  Age: 87 Year
  Sex: Female
  Weight: 66.7 kg

DRUGS (5)
  1. SYMBICORT [Suspect]
     Indication: CHRONIC OBSTRUCTIVE PULMONARY DISEASE
     Dosage: 80/4.5 MCG, 2 PUFFS BID
     Route: 055
  2. SYMBICORT [Suspect]
     Indication: CHRONIC OBSTRUCTIVE PULMONARY DISEASE
     Dosage: 80/4.5 MCG, MORNING DOSE
     Route: 055
  3. SPIREVA [Concomitant]
     Indication: CHRONIC OBSTRUCTIVE PULMONARY DISEASE
     Dosage: UNKNOWN UNK
     Route: 055
  4. EYE DROPS [Concomitant]
     Dosage: UNKNOWN UNK
     Route: 050
  5. UNSPECIFIED MEDICATION [Concomitant]
     Indication: FAECES HARD

REACTIONS (8)
  - Small cell lung cancer [Recovered/Resolved]
  - Cataract [Recovered/Resolved]
  - Ocular discomfort [Not Recovered/Not Resolved]
  - Body height decreased [Not Recovered/Not Resolved]
  - Pain [Not Recovered/Not Resolved]
  - Circumstance or information capable of leading to medication error [Not Recovered/Not Resolved]
  - Intentional product misuse [Unknown]
  - Off label use [Unknown]
